FAERS Safety Report 19446987 (Version 1)
Quarter: 2021Q2

REPORT INFORMATION
  Report Type: Spontaneous
  Country: US (occurrence: US)
  Receive Date: 20210622
  Receipt Date: 20210622
  Transmission Date: 20210717
  Serious: No
  Sender: FDA-Public Use
  Company Number: US-HIKMA PHARMACEUTICALS USA INC.-US-H14001-20-03987

PATIENT

DRUGS (1)
  1. FLUTICASONE. [Suspect]
     Active Substance: FLUTICASONE
     Indication: SEASONAL ALLERGY
     Dosage: UNKNOWN
     Route: 045
     Dates: start: 202008, end: 202008

REACTIONS (9)
  - Musculoskeletal stiffness [Recovered/Resolved]
  - Crying [Recovered/Resolved]
  - Dyspnoea [Recovered/Resolved]
  - Migraine [Recovered/Resolved]
  - Muscle tightness [Recovered/Resolved]
  - Feeling jittery [Recovered/Resolved]
  - Tremor [Recovered/Resolved]
  - Panic attack [Recovered/Resolved]
  - Fear [Recovered/Resolved]

NARRATIVE: CASE EVENT DATE: 202008
